FAERS Safety Report 7788861-X (Version None)
Quarter: 2011Q3

REPORT INFORMATION
  Report Type: 
  Country: None (occurrence: None)
  Receive Date: 20110928
  Receipt Date: 20110831
  Transmission Date: 20111222
  Serious: No
  Sender: FDA-Public Use
  Company Number: 2011-01285

PATIENT
  Age: 78 Year
  Sex: Female
  Weight: 68.0396 kg

DRUGS (5)
  1. VICODIN [Concomitant]
  2. PRESCRIPTION OF ^INJECTABLE MEDICAITON^ [Concomitant]
  3. ZICAM NASAL PRODUCTS [Suspect]
     Dosage: BID, ALMOST DAILY
  4. ASPIRIN [Concomitant]
  5. LEVOTHYROXINE SODIUM [Concomitant]

REACTIONS (3)
  - RHINORRHOEA [None]
  - HYPOGEUSIA [None]
  - ANOSMIA [None]
